FAERS Safety Report 4852210-7 (Version None)
Quarter: 2005Q4

REPORT INFORMATION
  Report Type: 
  Country: None (occurrence: None)
  Receive Date: 20051213
  Receipt Date: 20051205
  Transmission Date: 20060501
  Serious: Yes (Hospitalization)
  Sender: FDA-Public Use
  Company Number: FR-GLAXOSMITHKLINE-B0403139A

PATIENT
  Age: 50 Year
  Sex: Male
  Weight: 100 kg

DRUGS (4)
  1. SALBUMOL FORT [Suspect]
     Indication: ASTHMA
     Dosage: 5MG PER DAY
     Route: 042
     Dates: start: 20051001, end: 20051001
  2. SOLU-MEDROL [Concomitant]
     Indication: ASTHMA
     Dosage: 120MG PER DAY
     Route: 042
     Dates: start: 20051001, end: 20051001
  3. BRICANYL [Concomitant]
     Indication: ASTHMA
     Route: 055
     Dates: start: 20051001, end: 20051001
  4. ATROVENT [Concomitant]
     Indication: ASTHMA
     Route: 055
     Dates: start: 20051001, end: 20051001

REACTIONS (2)
  - HYPERGLYCAEMIA [None]
  - LACTIC ACIDOSIS [None]
